FAERS Safety Report 23688725 (Version 1)
Quarter: 2024Q1

REPORT INFORMATION
  Report Type: Spontaneous
  Country: US (occurrence: US)
  Receive Date: 20240329
  Receipt Date: 20240329
  Transmission Date: 20240410
  Serious: Yes (Other)
  Sender: FDA-Public Use
  Company Number: US-BAUSCH-BL-2024-004921

PATIENT
  Age: 66 Year
  Sex: Male
  Weight: 88.984 kg

DRUGS (2)
  1. TRULANCE [Suspect]
     Active Substance: PLECANATIDE
     Indication: Irritable bowel syndrome
     Dosage: USING ABUT 2-3 YEARS AGO
     Route: 065
  2. TRULANCE [Suspect]
     Active Substance: PLECANATIDE
     Route: 065

REACTIONS (10)
  - Haemorrhoidal haemorrhage [Unknown]
  - Gastrointestinal motility disorder [Unknown]
  - Eructation [Unknown]
  - Chills [Unknown]
  - Flatulence [Unknown]
  - Abdominal distension [Unknown]
  - Treatment noncompliance [Unknown]
  - Patient dissatisfaction with treatment [Unknown]
  - Wrong technique in product usage process [Unknown]
  - Product dose omission issue [Unknown]
